FAERS Safety Report 6816283-4 (Version None)
Quarter: 2010Q2

REPORT INFORMATION
  Report Type: 
  Country: None (occurrence: None)
  Receive Date: 20100630
  Receipt Date: 20100616
  Transmission Date: 20101027
  Serious: Yes (Death)
  Sender: FDA-Public Use
  Company Number: 006920

PATIENT
  Sex: Male
  Weight: 75.2971 kg

DRUGS (5)
  1. CIMZIA [Suspect]
     Indication: CROHN'S DISEASE
     Dosage: (SUBCUTANEOUS)
     Route: 058
     Dates: start: 20091120
  2. REMICADE [Suspect]
  3. MERCAPTOPURINE [Suspect]
  4. ZOLOFT [Concomitant]
  5. TRAMADOL [Concomitant]

REACTIONS (3)
  - PNEUMONIA [None]
  - TREATMENT NONCOMPLIANCE [None]
  - UNRESPONSIVE TO STIMULI [None]
